FAERS Safety Report 7370623-9 (Version None)
Quarter: 2011Q1

REPORT INFORMATION
  Report Type: 
  Country: None (occurrence: None)
  Receive Date: 20110323
  Receipt Date: 20110316
  Transmission Date: 20110831
  Serious: Yes (Other)
  Sender: FDA-Public Use
  Company Number: US-RB-022228-11

PATIENT
  Age: 47 Year
  Sex: Female

DRUGS (2)
  1. SUBOXONE [Suspect]
     Indication: PRODUCT USED FOR UNKNOWN INDICATION
     Dosage: DOSING INFORMATION UNKNOWN
     Route: 065
  2. SUBOXONE [Suspect]
     Indication: PRODUCT USED FOR UNKNOWN INDICATION
     Dosage: SUBLINGUAL FILM-DOSING INFORMATION UNKNOWN
     Route: 065

REACTIONS (15)
  - THIRST [None]
  - SUICIDAL IDEATION [None]
  - MEMORY IMPAIRMENT [None]
  - PARAESTHESIA [None]
  - FATIGUE [None]
  - MUSCLE SPASMS [None]
  - DIARRHOEA [None]
  - INTENTIONAL DRUG MISUSE [None]
  - HYPERSOMNIA [None]
  - ANXIETY [None]
  - ASTHENIA [None]
  - DYSPNOEA [None]
  - DEPRESSION [None]
  - MYALGIA [None]
  - NAUSEA [None]
